FAERS Safety Report 5622697-0 (Version None)
Quarter: 2008Q1

REPORT INFORMATION
  Report Type: 
  Country: None (occurrence: None)
  Receive Date: 20080208
  Receipt Date: 20080208
  Transmission Date: 20080703
  Serious: No
  Sender: FDA-Public Use
  Company Number: None

PATIENT
  Age: 68 Year
  Sex: Female
  Weight: 51.7101 kg

DRUGS (1)
  1. ZETIA [Suspect]

REACTIONS (4)
  - AMNESIA [None]
  - GALLBLADDER DISORDER [None]
  - MYALGIA [None]
  - PAIN [None]
